FAERS Safety Report 18683397 (Version 2)
Quarter: 2021Q1

REPORT INFORMATION
  Report Type: Other
  Country: JP (occurrence: JP)
  Receive Date: 20201230
  Receipt Date: 20210106
  Transmission Date: 20210419
  Serious: Yes (Hospitalization, Other)
  Sender: FDA-Public Use
  Company Number: JP-ROCHE-2372223

PATIENT
  Age: 61 Year
  Sex: Male
  Weight: 78 kg

DRUGS (4)
  1. ATEZOLIZUMAB. [Suspect]
     Active Substance: ATEZOLIZUMAB
     Route: 041
     Dates: start: 20200207, end: 20200207
  2. OPDIVO [Concomitant]
     Active Substance: NIVOLUMAB
     Route: 065
     Dates: start: 20201125
  3. ATEZOLIZUMAB. [Suspect]
     Active Substance: ATEZOLIZUMAB
     Indication: NON-SMALL CELL LUNG CANCER
     Route: 041
     Dates: start: 20190521, end: 20190521
  4. ATEZOLIZUMAB. [Suspect]
     Active Substance: ATEZOLIZUMAB
     Route: 041
     Dates: start: 20201006, end: 20201029

REACTIONS (7)
  - Dry mouth [Unknown]
  - Pruritus [Unknown]
  - Myasthenia gravis [Not Recovered/Not Resolved]
  - Hypothyroidism [Not Recovered/Not Resolved]
  - Steroid diabetes [Unknown]
  - Hypoaesthesia oral [Unknown]
  - Myositis [Unknown]

NARRATIVE: CASE EVENT DATE: 20190530
